FAERS Safety Report 16464026 (Version 1)
Quarter: 2019Q2

REPORT INFORMATION
  Report Type: Spontaneous
  Country: US (occurrence: US)
  Receive Date: 20190513
  Receipt Date: 20190513
  Transmission Date: 20190711
  Serious: No
  Sender: FDA-Public Use
  Company Number: None

PATIENT
  Age: 56 Year
  Sex: Female

DRUGS (1)
  1. HYALURONATE [Suspect]
     Active Substance: HYALURONIC ACID
     Dosage: ?          OTHER
     Route: 030
     Dates: start: 201905

REACTIONS (1)
  - Intercepted product prescribing error [None]

NARRATIVE: CASE EVENT DATE: 20190502
